FAERS Safety Report 17873534 (Version 1)
Quarter: 2020Q3

REPORT INFORMATION
  Report Type: Spontaneous
  Country: ES (occurrence: ES)
  Receive Date: 20200609
  Receipt Date: 20200609
  Transmission Date: 20201104
  Serious: Yes (Hospitalization, Other)
  Sender: FDA-Public Use
  Company Number: ES-AUROBINDO-AUR-APL-2020-027824

PATIENT
  Age: 86 Year
  Sex: Female

DRUGS (7)
  1. HYDROXYZINE [Suspect]
     Active Substance: HYDROXYZINE HYDROCHLORIDE
     Indication: PRURITUS
     Dosage: 25 MILLIGRAM, 3 TIMES A DAY
     Route: 048
     Dates: start: 20181212
  2. PARACETAMOL [Concomitant]
     Active Substance: ACETAMINOPHEN
     Indication: PRODUCT USED FOR UNKNOWN INDICATION
     Dosage: UNK
     Route: 065
  3. THIAMAZOLE [Concomitant]
     Active Substance: METHIMAZOLE
     Indication: PRODUCT USED FOR UNKNOWN INDICATION
     Dosage: UNK
     Route: 065
  4. IBUPROFEN 600 MG FILM?COATED TABLETS [Suspect]
     Active Substance: IBUPROFEN
     Indication: ARTHRALGIA
     Dosage: 600 MILLIGRAM, TWO TIMES A DAY
     Route: 048
     Dates: start: 20191211
  5. ENEAS [Suspect]
     Active Substance: ENALAPRIL MALEATE\NITRENDIPINE
     Indication: NEPHROPATHY
     Dosage: 10 MILLIGRAM, ONCE A DAY
     Route: 065
     Dates: start: 20070609
  6. ETORICOXIB. [Suspect]
     Active Substance: ETORICOXIB
     Indication: BACK PAIN
     Dosage: 30 MILLIGRAM, ONCE A DAY
     Route: 048
     Dates: start: 20200523
  7. AMERIDE [GLIMEPIRIDE] [Suspect]
     Active Substance: GLIMEPIRIDE
     Indication: HYPERTENSIVE NEPHROPATHY
     Dosage: 5 MILLIGRAM
     Route: 065
     Dates: start: 20070609

REACTIONS (3)
  - Cardiac failure [Recovering/Resolving]
  - Acute coronary syndrome [Not Recovered/Not Resolved]
  - Acute kidney injury [Recovering/Resolving]

NARRATIVE: CASE EVENT DATE: 20200525
